FAERS Safety Report 6556666-3 (Version None)
Quarter: 2010Q1

REPORT INFORMATION
  Report Type: 
  Country: None (occurrence: None)
  Receive Date: 20100128
  Receipt Date: 20100118
  Transmission Date: 20100710
  Serious: Yes (Hospitalization)
  Sender: FDA-Public Use
  Company Number: FR-PFIZER INC-2010006291

PATIENT
  Age: 83 Year
  Sex: Male

DRUGS (3)
  1. XANAX [Suspect]
     Dosage: 1 DF, 3X/DAY
     Route: 048
  2. STABLON [Suspect]
     Dosage: 12.5 MG, 2X/DAY
     Route: 048
     Dates: end: 20091001
  3. TAMSULOSIN [Suspect]
     Dosage: 1 DF, 1X/DAY
     Route: 048
     Dates: end: 20091001

REACTIONS (3)
  - CONFUSIONAL STATE [None]
  - FALL [None]
  - HYPONATRAEMIA [None]
